FAERS Safety Report 8343375-3 (Version None)
Quarter: 2012Q2

REPORT INFORMATION
  Report Type: 
  Country: None (occurrence: None)
  Receive Date: 20120508
  Receipt Date: 20120426
  Transmission Date: 20120825
  Serious: Yes (Hospitalization)
  Sender: FDA-Public Use
  Company Number: GB-BRISTOL-MYERS SQUIBB COMPANY-16392482

PATIENT
  Age: 44 Year
  Sex: Male
  Weight: 54 kg

DRUGS (8)
  1. AMITRIPTYLINE HCL [Concomitant]
     Indication: TUMOUR PAIN
     Dates: start: 20110812
  2. CETUXIMAB [Suspect]
     Indication: HEAD AND NECK CANCER
     Dosage: RECENT DOSE:12JAN12 INTER ON:24JAN12 RESUME ON:08FEB12 WIH 400MG
     Route: 042
     Dates: start: 20110805
  3. PEMETREXED DISODIUM [Suspect]
     Indication: HEAD AND NECK CANCER
     Dosage: DAY 1 EVERY 21 DAYS RECENT DOSE:29DEC11 INTER ON:24JAN12 RESUME ON:08FEB12 800MG
     Route: 042
     Dates: start: 20110805
  4. DEXAMETHASONE [Concomitant]
     Dates: start: 20110314
  5. FOLIC ACID [Concomitant]
     Dates: start: 20110314
  6. CISPLATIN [Suspect]
     Indication: HEAD AND NECK CANCER
     Route: 042
     Dates: start: 20110318
  7. MORPHINE SULFATE [Concomitant]
     Dates: start: 20110223
  8. VITAMIN B-12 [Concomitant]
     Dates: start: 20110317

REACTIONS (1)
  - WEIGHT DECREASED [None]
